FAERS Safety Report 10179193 (Version 1)
Quarter: 2014Q2

REPORT INFORMATION
  Report Type: Spontaneous
  Country: US (occurrence: US)
  Receive Date: 20140519
  Receipt Date: 20140519
  Transmission Date: 20141212
  Serious: No
  Sender: FDA-Public Use
  Company Number: US-PFIZER INC-2014135473

PATIENT
  Age: 71 Year
  Sex: Male
  Weight: 81.6 kg

DRUGS (7)
  1. CHANTIX [Suspect]
     Indication: SMOKING CESSATION THERAPY
     Dosage: 0.5 MG, UNK
     Route: 048
     Dates: start: 20131106, end: 201403
  2. SIMVASTATIN [Concomitant]
     Dosage: 20 MG, UNK
  3. CARISOPRODOL [Concomitant]
     Dosage: 350 MG, UNK
  4. SYNTHROID [Concomitant]
     Dosage: 250 UG, UNK
  5. LISINOPRIL [Concomitant]
     Dosage: 2.5 MG, UNK
  6. ETODOLAC [Concomitant]
     Dosage: 400 MG, UNK
  7. QVAR [Concomitant]
     Dosage: UNK

REACTIONS (2)
  - Weight decreased [Unknown]
  - Anxiety [Unknown]
